FAERS Safety Report 8117339-9 (Version None)
Quarter: 2012Q1

REPORT INFORMATION
  Report Type: 
  Country: None (occurrence: None)
  Receive Date: 20120206
  Receipt Date: 20111025
  Transmission Date: 20120608
  Serious: Yes (Other)
  Sender: FDA-Public Use
  Company Number: PHHY2011RU115529

PATIENT
  Age: 71 Year
  Sex: Female

DRUGS (1)
  1. MIACALCIN [Suspect]

REACTIONS (3)
  - PRURITUS [None]
  - RHINITIS [None]
  - URTICARIA [None]
